FAERS Safety Report 14265798 (Version 2)
Quarter: 2017Q4

REPORT INFORMATION
  Report Type: Report from Study
  Country: None (occurrence: BR)
  Receive Date: 20171209
  Receipt Date: 20171210
  Transmission Date: 20180321
  Serious: Yes (Hospitalization, Congenital Anomaly, Other)
  Sender: FDA-Public Use
  Company Number: BR-ABBVIE-17K-020-2181595-00

PATIENT
  Age: 37 Year
  Sex: Male
  Weight: 85 kg

DRUGS (4)
  1. HUMIRA [Suspect]
     Active Substance: ADALIMUMAB
     Indication: PSORIASIS
     Dosage: LOADING DOSE
     Route: 058
     Dates: start: 20150126, end: 20150126
  2. HUMIRA [Suspect]
     Active Substance: ADALIMUMAB
     Route: 058
     Dates: end: 20171017
  3. IBUPROFEN. [Suspect]
     Active Substance: IBUPROFEN
     Indication: PRODUCT USED FOR UNKNOWN INDICATION
     Route: 065
  4. DIPYRONE [Suspect]
     Active Substance: DIPYRONE
     Indication: PRODUCT USED FOR UNKNOWN INDICATION
     Route: 065

REACTIONS (12)
  - Surgery [Unknown]
  - Tuberculosis [Recovering/Resolving]
  - Tuberculosis gastrointestinal [Recovered/Resolved]
  - Psoriasis [Not Recovered/Not Resolved]
  - Night sweats [Recovered/Resolved]
  - Pruritus generalised [Recovered/Resolved]
  - Pruritus [Recovered/Resolved]
  - Pleural effusion [Unknown]
  - Intra-abdominal fluid collection [Recovered/Resolved]
  - Pleural effusion [Recovered/Resolved]
  - Immunodeficiency [Recovering/Resolving]
  - Skin mass [Recovered/Resolved]

NARRATIVE: CASE EVENT DATE: 201511
